FAERS Safety Report 9740475 (Version 1)
Quarter: 2013Q4

REPORT INFORMATION
  Report Type: Spontaneous
  Country: US (occurrence: US)
  Receive Date: 20131209
  Receipt Date: 20131209
  Transmission Date: 20140711
  Serious: No
  Sender: FDA-Public Use
  Company Number: US-BIOGENIDEC-2013BI092936

PATIENT
  Sex: Male

DRUGS (4)
  1. TECFIDERA [Suspect]
     Indication: MULTIPLE SCLEROSIS
     Route: 048
  2. DETROL LA [Concomitant]
  3. AMITRIPTYLINE HCL [Concomitant]
  4. VITAMIN D [Concomitant]

REACTIONS (1)
  - Erythema [Not Recovered/Not Resolved]
